FAERS Safety Report 9966593 (Version 1)
Quarter: 2014Q1

REPORT INFORMATION
  Report Type: Report from Study
  Country: PR (occurrence: PR)
  Receive Date: 20140305
  Receipt Date: 20140305
  Transmission Date: 20141002
  Serious: No
  Sender: FDA-Public Use
  Company Number: PR-ABBVIE-13P-131-1122746-00

PATIENT
  Sex: Male
  Weight: 111.23 kg

DRUGS (2)
  1. HUMIRA [Suspect]
     Indication: HIDRADENITIS
     Route: 058
     Dates: end: 201306
  2. KLONOPIN [Concomitant]
     Indication: ANXIETY
     Route: 048

REACTIONS (2)
  - Abscess [Not Recovered/Not Resolved]
  - Abscess drainage [Unknown]
